FAERS Safety Report 7977646-7 (Version None)
Quarter: 2011Q4

REPORT INFORMATION
  Report Type: 
  Country: None (occurrence: None)
  Receive Date: 20111214
  Receipt Date: 20111123
  Transmission Date: 20120403
  Serious: No
  Sender: FDA-Public Use
  Company Number: US-AMGEN-USASP2011041001

PATIENT
  Age: 25 Year
  Sex: Female
  Weight: 68.3 kg

DRUGS (3)
  1. ENBREL [Suspect]
     Indication: RAYNAUD'S PHENOMENON
  2. ENBREL [Suspect]
     Indication: PSORIASIS
  3. ENBREL [Suspect]
     Indication: RHEUMATOID ARTHRITIS
     Dosage: 50 MG, QWK
     Route: 058
     Dates: start: 20110601

REACTIONS (5)
  - INJECTION SITE PAIN [None]
  - INJECTION SITE URTICARIA [None]
  - INJECTION SITE DISCOLOURATION [None]
  - PARAESTHESIA [None]
  - SKIN DEPIGMENTATION [None]
